FAERS Safety Report 10563313 (Version 1)
Quarter: 2014Q4

REPORT INFORMATION
  Report Type: Spontaneous
  Country: US (occurrence: None)
  Receive Date: 20141103
  Receipt Date: 20141103
  Transmission Date: 20150529
  Serious: Yes (Other)
  Sender: FDA-Public Use
  Company Number: None

PATIENT
  Age: 68 Year
  Sex: Male
  Weight: 90.72 kg

DRUGS (2)
  1. QVAR [Suspect]
     Active Substance: BECLOMETHASONE DIPROPIONATE
     Indication: ASTHMA
     Dosage: 2 PUFFS TWICE DAILY?TWICE DAILY?INHALATION
     Route: 055
     Dates: start: 20140811, end: 20141014
  2. QVAR [Suspect]
     Active Substance: BECLOMETHASONE DIPROPIONATE
     Indication: CHRONIC OBSTRUCTIVE PULMONARY DISEASE
     Dosage: 2 PUFFS TWICE DAILY?TWICE DAILY?INHALATION
     Route: 055
     Dates: start: 20140811, end: 20141014

REACTIONS (8)
  - Back pain [None]
  - Asthenia [None]
  - Dysphonia [None]
  - Nausea [None]
  - Rhinorrhoea [None]
  - Headache [None]
  - Renal impairment [None]
  - Fatigue [None]
